FAERS Safety Report 9261228 (Version 3)
Quarter: 2013Q3

REPORT INFORMATION
  Report Type: Spontaneous
  Country: BR (occurrence: BR)
  Receive Date: 20130429
  Receipt Date: 20130819
  Transmission Date: 20140515
  Serious: Yes (Hospitalization, Other)
  Sender: FDA-Public Use
  Company Number: PHHY2013BR041611

PATIENT
  Sex: Female
  Weight: 92 kg

DRUGS (12)
  1. RASILEZ [Suspect]
     Indication: HYPERTENSION
     Dosage: 300 MG, DAILY
     Route: 048
  2. DIOVAN HCT [Suspect]
     Indication: HYPERTENSION
     Dosage: 1 DF (160 MG VALS/12.5MG HYDRO), DAILY
     Route: 048
  3. LASIX [Concomitant]
     Indication: HYPERTENSION
     Dosage: 40 MG, DAILY
     Route: 048
  4. ALDACTONE [Concomitant]
     Indication: HYPERTENSION
     Dosage: 25 MG, DAILY
     Route: 048
     Dates: start: 201301
  5. ALENIA [Concomitant]
     Indication: LUNG DISORDER
     Dosage: UNK UKN, QD
     Dates: start: 2005
  6. DIOSMIN [Concomitant]
     Indication: PERIPHERAL VASCULAR DISORDER
     Dosage: 1 DF, DAILY
     Route: 048
  7. LABIRIN [Concomitant]
     Indication: LABYRINTHITIS
     Dosage: 1 DF, DAILY
     Route: 048
  8. GINKO BILOBA [Concomitant]
     Indication: LABYRINTHITIS
     Dosage: 1 DF, DAILY
     Route: 048
  9. URO-VAXOM [Concomitant]
     Indication: PROPHYLAXIS
     Dosage: 6 MG, DAILY
     Route: 048
  10. TOCOPHEROL [Concomitant]
     Dosage: 400 MG, DAILY
     Route: 048
  11. ANTAK [Concomitant]
     Indication: ABDOMINAL DISCOMFORT
     Dosage: 300 MG, DAILY
     Route: 048
  12. PANTOPRAZOLE [Concomitant]
     Indication: ABDOMINAL DISCOMFORT
     Dosage: 40 MG, DAILY
     Route: 048

REACTIONS (11)
  - Pneumonia [Recovered/Resolved]
  - Pulmonary oedema [Recovered/Resolved]
  - Acute respiratory failure [Recovered/Resolved]
  - Fluid retention [Recovered/Resolved]
  - Pancreatic neoplasm [Recovered/Resolved]
  - Chronic obstructive pulmonary disease [Recovering/Resolving]
  - Diabetes mellitus [Recovering/Resolving]
  - Blood glucose increased [Recovering/Resolving]
  - Urinary tract infection [Recovered/Resolved]
  - Oedema peripheral [Recovered/Resolved]
  - Drug ineffective [Recovered/Resolved]
